FAERS Safety Report 8890386 (Version 3)
Quarter: 2013Q2

REPORT INFORMATION
  Report Type: Spontaneous
  Country: US (occurrence: US)
  Receive Date: 20121107
  Receipt Date: 20130408
  Transmission Date: 20140414
  Serious: Yes (Death, Other)
  Sender: FDA-Public Use
  Company Number: PHEH2012US021791

PATIENT
  Age: 46 Year
  Sex: Female

DRUGS (5)
  1. GILENYA [Suspect]
     Indication: MULTIPLE SCLEROSIS
     Dosage: 0.5 MG, QD
     Route: 048
     Dates: start: 20110329
  2. CALAN [Concomitant]
     Indication: HEADACHE
     Dosage: 120 MG, QD
     Route: 048
     Dates: start: 20110902
  3. CONCERTA [Concomitant]
     Dosage: 1 DF, QD
     Route: 048
     Dates: start: 20110902
  4. FIORICET [Concomitant]
     Indication: MIGRAINE
     Dosage: 1 DF, UNK
     Route: 048
     Dates: start: 20110628
  5. IMITREX ^CERENEX^ [Concomitant]
     Indication: MIGRAINE
     Dosage: 1 DF, UNK
     Dates: start: 20120123

REACTIONS (2)
  - Death [Fatal]
  - Gallbladder disorder [Unknown]
